FAERS Safety Report 5722097-9 (Version None)
Quarter: 2008Q2

REPORT INFORMATION
  Report Type: 
  Country: None (occurrence: None)
  Receive Date: 20080429
  Receipt Date: 20080417
  Transmission Date: 20081010
  Serious: Yes (Hospitalization)
  Sender: FDA-Public Use
  Company Number: FR-PFIZER INC-2008035047

PATIENT
  Age: 44 Year
  Sex: Female

DRUGS (6)
  1. DALACINE [Suspect]
     Indication: EYE INFECTION TOXOPLASMAL
     Dosage: DAILY DOSE:1GRAM
     Route: 048
  2. MALOCIDE [Suspect]
     Indication: EYE INFECTION TOXOPLASMAL
     Dosage: DAILY DOSE:1200MG
     Route: 048
  3. CORTANCYL [Concomitant]
  4. DIFFU K [Concomitant]
  5. OMEPRAZOLE [Concomitant]
  6. MAXIDROL [Concomitant]

REACTIONS (9)
  - DYSGEUSIA [None]
  - HEADACHE [None]
  - HYPERTONIA [None]
  - INTRAOCULAR PRESSURE INCREASED [None]
  - NAUSEA [None]
  - PHOTOPHOBIA [None]
  - SKIN DISORDER [None]
  - VERTIGO [None]
  - VOMITING [None]
